FAERS Safety Report 6676559-0 (Version None)
Quarter: 2010Q2

REPORT INFORMATION
  Report Type: 
  Country: None (occurrence: None)
  Receive Date: 20100412
  Receipt Date: 20100329
  Transmission Date: 20101027
  Serious: Yes (Hospitalization)
  Sender: FDA-Public Use
  Company Number: FR-PURDUE-USA-2010-0043163

PATIENT
  Sex: Male
  Weight: 51 kg

DRUGS (18)
  1. TRAMADOL HCL [Suspect]
     Indication: PAIN
     Dosage: UNK
     Dates: start: 20091201
  2. TRAMADOL HCL [Suspect]
     Indication: HEADACHE
     Dosage: UNK
     Dates: start: 20091114, end: 20091201
  3. NEXAVAR [Suspect]
     Indication: HEPATIC NEOPLASM MALIGNANT
     Dosage: 400 MG, DAILY
     Route: 048
     Dates: start: 20091021
  4. XANAX [Suspect]
     Indication: DEPRESSION
     Dosage: UNK
     Dates: start: 20091202
  5. OXYCODONE HCL [Suspect]
     Indication: PAIN
     Dosage: UNK
     Dates: start: 20091202
  6. NEURONTIN [Suspect]
     Indication: HEADACHE
     Dosage: 300 MG, DAILY
     Dates: start: 20091114
  7. STILNOX                            /00914901/ [Suspect]
     Indication: PROPHYLAXIS
     Dosage: UNK
     Dates: start: 20091202
  8. GARDENAL                           /00023201/ [Concomitant]
     Indication: EPILEPSY
     Dosage: 100 MG, DAILY
     Route: 048
     Dates: start: 19990101
  9. CLARITIN [Concomitant]
     Indication: SEASONAL ALLERGY
     Dosage: 1 TABLET, PRN
     Dates: start: 20000101
  10. OMEPRAZOLE [Concomitant]
     Indication: PROPHYLAXIS
     Dosage: 2 TABLET, PRN
     Dates: start: 20090801
  11. PARACETAMOL [Concomitant]
     Indication: PAIN
     Dosage: UNK TABLET, DAILY
     Dates: start: 20090801, end: 20091027
  12. PARACETAMOL [Concomitant]
     Indication: HEADACHE
  13. ACTIFED                            /00005601/ [Concomitant]
     Indication: RHINITIS ALLERGIC
     Dosage: UNK
     Dates: start: 20071010, end: 20091027
  14. EFFEXOR [Concomitant]
     Indication: DEPRESSION
     Dosage: 75 MG, DAILY
     Dates: start: 20091023
  15. PROPOFAN                           /00765201/ [Concomitant]
     Indication: PAIN
     Dosage: 10 TABLET, PRN
     Dates: start: 20091027
  16. PROPOFAN                           /00765201/ [Concomitant]
     Indication: HEADACHE
  17. ULTRACET [Concomitant]
     Indication: DRUG USE FOR UNKNOWN INDICATION
     Dosage: UNK
     Dates: start: 20090801, end: 20091027
  18. EQUANIL [Concomitant]
     Indication: DEPRESSION
     Dosage: UNK
     Dates: start: 20091202

REACTIONS (2)
  - CONFUSIONAL STATE [None]
  - MALNUTRITION [None]
